FAERS Safety Report 7729995-5 (Version None)
Quarter: 2011Q3

REPORT INFORMATION
  Report Type: 
  Country: None (occurrence: None)
  Receive Date: 20110906
  Receipt Date: 20110825
  Transmission Date: 20111222
  Serious: Yes (Hospitalization)
  Sender: FDA-Public Use
  Company Number: PHHO2011US12430

PATIENT
  Sex: Female
  Weight: 58 kg

DRUGS (19)
  1. SERTRALINE HYDROCHLORIDE [Concomitant]
     Indication: DEPRESSION
  2. SENNA [Concomitant]
     Indication: CONSTIPATION
  3. VITAMIN D [Concomitant]
  4. EXELON [Suspect]
     Indication: DEMENTIA ALZHEIMER'S TYPE
     Dosage: CODE NOT BROKEN
     Route: 062
     Dates: start: 20110427, end: 20110717
  5. BLINDED NO TREATMENT RECEIVED [Suspect]
     Indication: DEMENTIA ALZHEIMER'S TYPE
     Dosage: CODE NOT BROKEN
     Route: 062
     Dates: start: 20110427, end: 20110717
  6. SODIUM DIBUNATE [Concomitant]
  7. EXELON [Suspect]
     Dosage: CODE NOT BROKEN
     Route: 062
     Dates: start: 20110729
  8. FELODIPINE [Concomitant]
     Indication: HYPERTENSION
  9. EXCEDRIN (MIGRAINE) [Concomitant]
     Indication: ARTHRITIS
  10. RISPERDAL [Concomitant]
     Indication: HALLUCINATION
  11. CRESTOR [Concomitant]
     Indication: BLOOD CHOLESTEROL INCREASED
  12. PRILOSEC [Concomitant]
     Indication: GASTROOESOPHAGEAL REFLUX DISEASE
  13. ZETIA [Concomitant]
     Indication: BLOOD CHOLESTEROL INCREASED
  14. SEROQUEL [Concomitant]
     Indication: HALLUCINATION
  15. CIPROFLOXACIN [Concomitant]
     Indication: URINARY TRACT INFECTION
  16. NEXIUM [Concomitant]
     Indication: GASTROOESOPHAGEAL REFLUX DISEASE
  17. BLINDED NO TREATMENT RECEIVED [Suspect]
     Dosage: CODE NOT BROKEN
     Route: 062
     Dates: start: 20110729
  18. DULCOLAX [Concomitant]
     Indication: CONSTIPATION
  19. CALCIUM CARBONATE [Concomitant]

REACTIONS (1)
  - BILIARY DYSKINESIA [None]
